FAERS Safety Report 18348563 (Version 2)
Quarter: 2020Q4

REPORT INFORMATION
  Report Type: Spontaneous
  Country: US (occurrence: US)
  Receive Date: 20201006
  Receipt Date: 20201014
  Transmission Date: 20210114
  Serious: Yes (Hospitalization, Other)
  Sender: FDA-Public Use
  Company Number: US-PFIZER INC-2020384320

PATIENT
  Age: 30 Year
  Sex: Female

DRUGS (3)
  1. TRANYLCYPROMINE [Concomitant]
     Active Substance: TRANYLCYPROMINE
     Indication: MAJOR DEPRESSION
  2. ALPRAZOLAM. [Suspect]
     Active Substance: ALPRAZOLAM
     Indication: BORDERLINE PERSONALITY DISORDER
     Dosage: 0.25 MG, 3X/DAY (0.75 MG/DAY)
  3. TRANYLCYPROMINE [Concomitant]
     Active Substance: TRANYLCYPROMINE
     Indication: CYCLOTHYMIC DISORDER
     Dosage: 30 MG, 1X/DAY

REACTIONS (5)
  - Intentional self-injury [Recovered/Resolved]
  - Nightmare [Recovered/Resolved]
  - Disease recurrence [Recovered/Resolved]
  - Product use in unapproved indication [Unknown]
  - Off label use [Unknown]
